APPROVED DRUG PRODUCT: TRI-NORINYL 21-DAY
Active Ingredient: ETHINYL ESTRADIOL; NORETHINDRONE
Strength: 0.035MG,0.035MG,0.035MG;0.5MG,1MG,0.5MG
Dosage Form/Route: TABLET;ORAL-21
Application: N018977 | Product #001
Applicant: DR REDDYS LABORATORIES SA
Approved: Apr 13, 1984 | RLD: No | RS: No | Type: DISCN